FAERS Safety Report 19382732 (Version 3)
Quarter: 2023Q1

REPORT INFORMATION
  Report Type: Report from Study
  Country: CA (occurrence: CA)
  Receive Date: 20210607
  Receipt Date: 20230119
  Transmission Date: 20230418
  Serious: Yes (Death)
  Sender: FDA-Public Use
  Company Number: CA-EXELIXIS-CABO-21041177

PATIENT
  Age: 71 Year
  Sex: Male
  Weight: 71.9 kg

DRUGS (8)
  1. CABOMETYX [Suspect]
     Active Substance: CABOZANTINIB S-MALATE
     Indication: Metastatic renal cell carcinoma
     Dosage: 40 MG, QD
     Route: 048
     Dates: start: 20200317
  2. PANTOPRAZOLE [Concomitant]
     Active Substance: PANTOPRAZOLE
  3. PRAVASTATIN [Concomitant]
     Active Substance: PRAVASTATIN
  4. CODEINE [Concomitant]
     Active Substance: CODEINE
  5. ADVIL [Concomitant]
     Active Substance: IBUPROFEN
  6. VITAMIN C [Concomitant]
     Active Substance: ASCORBIC ACID
  7. COENZYME Q10 [Concomitant]
     Active Substance: DIETARY SUPPLEMENT\UBIDECARENONE
  8. TUMS [Concomitant]
     Active Substance: CALCIUM CARBONATE

REACTIONS (4)
  - Death [Fatal]
  - Hiccups [Unknown]
  - Depressed level of consciousness [Unknown]
  - Ascites [Unknown]

NARRATIVE: CASE EVENT DATE: 20200705
